FAERS Safety Report 16171204 (Version 1)
Quarter: 2019Q2

REPORT INFORMATION
  Report Type: Spontaneous
  Country: US (occurrence: US)
  Receive Date: 20190408
  Receipt Date: 20190408
  Transmission Date: 20190711
  Serious: Yes (Other)
  Sender: FDA-Public Use
  Company Number: US-LEXICON PHARMACEUTICALS, INC-19-1606-00386

PATIENT
  Sex: Male

DRUGS (21)
  1. ASPIRIN. [Concomitant]
     Active Substance: ASPIRIN
  2. TEMAZEPAM. [Concomitant]
     Active Substance: TEMAZEPAM
  3. MULTIVITAMIN [Concomitant]
     Active Substance: VITAMINS
  4. VENLAFAXINE [Concomitant]
     Active Substance: VENLAFAXINE HYDROCHLORIDE
  5. COENZYME Q10 [Concomitant]
     Active Substance: UBIDECARENONE
  6. NOVOLOG [Concomitant]
     Active Substance: INSULIN ASPART
  7. LUTATHERA [Concomitant]
     Active Substance: LUTETIUM OXODOTREOTIDE LU-177
  8. TELOTRISTAT ETHYL [Suspect]
     Active Substance: TELOTRISTAT ETHYL
     Indication: CARCINOID SYNDROME
     Route: 048
     Dates: start: 20180627
  9. LOMOTIL [Concomitant]
     Active Substance: ATROPINE SULFATE\DIPHENOXYLATE HYDROCHLORIDE
  10. VITAMIN C [Concomitant]
     Active Substance: ASCORBIC ACID
  11. LOPERAMIDE [Concomitant]
     Active Substance: LOPERAMIDE
  12. CLOPIDOGREL BISULFATE. [Concomitant]
     Active Substance: CLOPIDOGREL BISULFATE
  13. FISH OIL [Concomitant]
     Active Substance: FISH OIL
  14. AMLODIPINE [Concomitant]
     Active Substance: AMLODIPINE BESYLATE
  15. CAL-CITRATE PLUS [Concomitant]
  16. BASAGLAR [Concomitant]
     Active Substance: INSULIN GLARGINE
  17. EZETIMIBE. [Concomitant]
     Active Substance: EZETIMIBE
  18. LORAZEPAM. [Concomitant]
     Active Substance: LORAZEPAM
  19. METFORMIN [Concomitant]
     Active Substance: METFORMIN HYDROCHLORIDE
  20. SIMVASTATIN. [Concomitant]
     Active Substance: SIMVASTATIN
  21. SILENOR [Concomitant]
     Active Substance: DOXEPIN HYDROCHLORIDE

REACTIONS (1)
  - Syncope [Unknown]
